FAERS Safety Report 18630012 (Version 1)
Quarter: 2020Q4

REPORT INFORMATION
  Report Type: Report from Study
  Country: IT (occurrence: IT)
  Receive Date: 20201217
  Receipt Date: 20201217
  Transmission Date: 20210114
  Serious: Yes (Other)
  Sender: FDA-Public Use
  Company Number: IT-MYLANLABS-2020M1103047

PATIENT
  Age: 33 Year
  Sex: Male

DRUGS (2)
  1. BRUFEN [Suspect]
     Active Substance: IBUPROFEN
     Indication: NECK PAIN
     Dosage: 1 DOSAGE FORM, PRN
     Route: 048
     Dates: start: 20201001, end: 20201004
  2. OKI [Suspect]
     Active Substance: KETOPROFEN LYSINE
     Indication: NECK PAIN
     Dosage: 80 MILLIGRAM, PRN
     Route: 048
     Dates: start: 20201001, end: 20201004

REACTIONS (2)
  - Abdominal wall haematoma [Recovering/Resolving]
  - Spontaneous haematoma [Recovering/Resolving]

NARRATIVE: CASE EVENT DATE: 20201001
